FAERS Safety Report 7898311-0 (Version None)
Quarter: 2011Q4

REPORT INFORMATION
  Report Type: 
  Country: None (occurrence: None)
  Receive Date: 20111107
  Receipt Date: 20111102
  Transmission Date: 20120403
  Serious: Yes (Death, Hospitalization, Other)
  Sender: FDA-Public Use
  Company Number: VE-PFIZER INC-2006112074

PATIENT
  Age: 56 Year
  Sex: Male
  Weight: 84 kg

DRUGS (6)
  1. METFORMIN HYDROCHLORIDE/ROSIGLITAZONE [Concomitant]
     Route: 048
     Dates: start: 20020701
  2. GLIMEPIRIDE [Concomitant]
     Route: 048
     Dates: start: 20020701
  3. EZETIMIBE/SIMVASTATIN [Concomitant]
     Route: 048
     Dates: start: 20020701
  4. SUNITINIB MALATE [Suspect]
     Indication: RENAL CANCER
     Dosage: 50 MG, 1X/DAY
     Route: 048
     Dates: start: 20060905, end: 20060930
  5. LERCANIDIPINE [Concomitant]
     Route: 048
     Dates: start: 20060701
  6. OXYCODONE HCL [Concomitant]
     Route: 048
     Dates: start: 20060815

REACTIONS (7)
  - WHITE BLOOD CELL COUNT INCREASED [None]
  - PNEUMONIA [None]
  - CONVULSION [None]
  - BRAIN OEDEMA [None]
  - DIARRHOEA [None]
  - HYPOGLYCAEMIA [None]
  - HYPONATRAEMIA [None]
